FAERS Safety Report 4630616-9 (Version None)
Quarter: 2005Q2

REPORT INFORMATION
  Report Type: 
  Country: None (occurrence: None)
  Receive Date: 20050408
  Receipt Date: 20050404
  Transmission Date: 20051028
  Serious: Yes (Death)
  Sender: FDA-Public Use
  Company Number: PHFR2005GB01384

PATIENT
  Age: 57 Year
  Sex: Male

DRUGS (3)
  1. FLUDARABINE PHOSPHATE [Suspect]
     Indication: CHRONIC LYMPHOCYTIC LEUKAEMIA
     Dosage: 25MG/M2
     Route: 065
     Dates: end: 19971001
  2. STEROIDS NOS [Suspect]
     Indication: HAEMOLYTIC ANAEMIA
     Route: 065
  3. CYCLOSPORINE [Suspect]
     Indication: HAEMOLYTIC ANAEMIA
     Route: 065

REACTIONS (2)
  - BONE MARROW DISORDER [None]
  - CHRONIC LYMPHOCYTIC LEUKAEMIA TRANSFORMATION [None]
